FAERS Safety Report 19051256 (Version 1)
Quarter: 2021Q1

REPORT INFORMATION
  Report Type: Report from Study
  Country: None (occurrence: BE)
  Receive Date: 20210323
  Receipt Date: 20210323
  Transmission Date: 20210420
  Serious: Yes (Hospitalization)
  Sender: FDA-Public Use
  Company Number: BE-ABBVIE-21K-013-3824783-00

PATIENT
  Age: 80 Year
  Sex: Male

DRUGS (4)
  1. DUODOPA [Suspect]
     Active Substance: CARBIDOPA\LEVODOPA
     Indication: PARKINSON^S DISEASE
     Dosage: UNKNOWN DOSAGES
     Route: 050
     Dates: start: 20200429, end: 20201023
  2. DUODOPA [Suspect]
     Active Substance: CARBIDOPA\LEVODOPA
     Dosage: DOSES CONTINUOUSLY MONITORED AND ADAPTED
     Route: 050
     Dates: start: 20201026, end: 20210204
  3. DUODOPA [Suspect]
     Active Substance: CARBIDOPA\LEVODOPA
     Dosage: MD=4.0ML, CD=4.6ML/HR DURING 16HRS, ED=2.0ML, ND=4.6ML/HR DURING 8HRS
     Route: 050
     Dates: start: 20201023, end: 20201026
  4. DUODOPA [Suspect]
     Active Substance: CARBIDOPA\LEVODOPA
     Dosage: MD=4.0ML, CD=6.0ML/HR DURING 16HRS, ED=3.5ML, ND=6.0ML/HR DURING 8HRS
     Route: 050
     Dates: start: 20210204

REACTIONS (3)
  - Fall [Recovered/Resolved]
  - Device dislocation [Recovered/Resolved]
  - Device loosening [Recovered/Resolved]
